FAERS Safety Report 12330619 (Version 1)
Quarter: 2016Q2

REPORT INFORMATION
  Report Type: Spontaneous
  Country: DE (occurrence: DE)
  Receive Date: 20160504
  Receipt Date: 20160504
  Transmission Date: 20160815
  Serious: Yes (Other)
  Sender: FDA-Public Use
  Company Number: DE-ASTRAZENECA-2016SE46779

PATIENT
  Sex: Male

DRUGS (9)
  1. ATORVASTATIN [Concomitant]
     Active Substance: ATORVASTATIN
  2. TRAMAL TROPFEN [Suspect]
     Active Substance: TRAMADOL HYDROCHLORIDE
     Route: 065
  3. ELONTRIL [Suspect]
     Active Substance: BUPROPION HYDROCHLORIDE
     Route: 065
  4. TAVOR (LORAZEPAM) [Suspect]
     Active Substance: LORAZEPAM
     Route: 065
  5. ZYLORIC 300 [Concomitant]
  6. OPIPRAMOL [Suspect]
     Active Substance: OPIPRAMOL
     Route: 065
  7. SEROQUEL [Suspect]
     Active Substance: QUETIAPINE FUMARATE
     Route: 048
  8. COAPROVEL [Concomitant]
     Active Substance: HYDROCHLOROTHIAZIDE\IRBESARTAN
  9. EUVEGAL [Concomitant]

REACTIONS (2)
  - Sexual abuse [Unknown]
  - Amnesia [Unknown]
